FAERS Safety Report 4361159-8 (Version None)
Quarter: 2004Q2

REPORT INFORMATION
  Report Type: 
  Country: None (occurrence: None)
  Receive Date: 20040511
  Receipt Date: 20030708
  Transmission Date: 20050107
  Serious: Yes (Other)
  Sender: FDA-Public Use
  Company Number: 03-183-0686

PATIENT
  Age: 3 Day
  Sex: Male
  Weight: 3 kg

DRUGS (2)
  1. ACYCLOVIR [Suspect]
     Indication: ANTIVIRAL PROPHYLAXIS
     Dosage: 65 MG IV Q8H
     Dates: start: 20030705, end: 20030707
  2. ACYCLOVIR [Suspect]
     Indication: HERPES VIRUS INFECTION
     Dosage: 65 MG IV Q8H
     Dates: start: 20030705, end: 20030707

REACTIONS (1)
  - BLISTER [None]
